FAERS Safety Report 6803727-7 (Version None)
Quarter: 2010Q2

REPORT INFORMATION
  Report Type: 
  Country: None (occurrence: None)
  Receive Date: 20100628
  Receipt Date: 20100616
  Transmission Date: 20101027
  Serious: Yes (Other)
  Sender: FDA-Public Use
  Company Number: TR-ELI_LILLY_AND_COMPANY-TR201006005362

PATIENT
  Sex: Female

DRUGS (5)
  1. HUMULIN R [Suspect]
     Indication: GESTATIONAL DIABETES
     Dosage: 8 U, EACH MORNING
     Route: 058
  2. HUMULIN R [Suspect]
     Dosage: 8 U, DAILY (1/D) NOON
     Route: 058
  3. HUMULIN R [Suspect]
     Dosage: 8 U, EACH EVENING
     Route: 058
  4. HUMULIN N [Suspect]
     Indication: GESTATIONAL DIABETES
     Dosage: 8 U, DAILY (1/D) NIGHT
     Route: 065
  5. VITAMINS [Concomitant]
     Dosage: UNK, DAILY (1/D)
     Route: 065

REACTIONS (2)
  - COAGULOPATHY [None]
  - DRUG EXPOSURE DURING PREGNANCY [None]
